FAERS Safety Report 25652622 (Version 4)
Quarter: 2025Q4

REPORT INFORMATION
  Report Type: Spontaneous
  Country: US (occurrence: US)
  Receive Date: 20250807
  Receipt Date: 20251008
  Transmission Date: 20260118
  Serious: Yes (Hospitalization, Other)
  Sender: NOVARTIS
  Company Number: US-002147023-NVSC2025US122535

PATIENT
  Age: 2 Year
  Sex: Female
  Weight: 11.7 kg

DRUGS (5)
  1. PROMACTA [Suspect]
     Active Substance: ELTROMBOPAG OLAMINE
     Indication: Immune thrombocytopenia
     Dosage: 25 MG, QD
     Route: 048
     Dates: start: 20250425
  2. PROMACTA [Suspect]
     Active Substance: ELTROMBOPAG OLAMINE
     Dosage: 75 MG
     Route: 065
     Dates: start: 20250424, end: 20250707
  3. PROMACTA [Suspect]
     Active Substance: ELTROMBOPAG OLAMINE
     Dosage: 25 MG
     Route: 048
     Dates: start: 20250424, end: 20250507
  4. PROMACTA [Suspect]
     Active Substance: ELTROMBOPAG OLAMINE
     Dosage: 50 MG
     Route: 048
     Dates: start: 20250508, end: 20250521
  5. PROMACTA [Suspect]
     Active Substance: ELTROMBOPAG OLAMINE
     Dosage: 75 MG
     Route: 048
     Dates: start: 20250522, end: 20250804

REACTIONS (6)
  - Hepatic enzyme increased [Recovered/Resolved]
  - Hepatic failure [Recovering/Resolving]
  - Liver injury [Recovering/Resolving]
  - Vomiting [Unknown]
  - Jaundice [Unknown]
  - Oliguria [Unknown]

NARRATIVE: CASE EVENT DATE: 20250702
